FAERS Safety Report 9686361 (Version 2)
Quarter: 2015Q3

REPORT INFORMATION
  Report Type: Spontaneous
  Country: FR (occurrence: FR)
  Receive Date: 20131113
  Receipt Date: 20150911
  Transmission Date: 20151125
  Serious: Yes (Hospitalization, Disabling, Other)
  Sender: FDA-Public Use
  Company Number: FR-ELI_LILLY_AND_COMPANY-FR201311001499

PATIENT
  Age: 43 Year
  Sex: Male

DRUGS (6)
  1. EFIENT [Suspect]
     Active Substance: PRASUGREL HYDROCHLORIDE
     Indication: STENT PLACEMENT
     Dosage: 10 MG, SINGLE
     Route: 048
     Dates: start: 20120831, end: 20120831
  2. PLAVIX [Suspect]
     Active Substance: CLOPIDOGREL BISULFATE
     Dosage: UNK
     Dates: start: 20130917
  3. HEPARIN [Suspect]
     Active Substance: HEPARIN SODIUM
     Dosage: 4000 IU, UNK
     Route: 042
     Dates: start: 20120831, end: 20120831
  4. ASPEGIC                            /00657701/ [Suspect]
     Active Substance: ASPIRIN DL-LYSINE\GLYCINE
     Dosage: 250 MG, UNK
     Route: 042
     Dates: start: 20120831, end: 20120831
  5. PLAVIX [Suspect]
     Active Substance: CLOPIDOGREL BISULFATE
     Dosage: 600 MG, UNK
     Route: 048
     Dates: start: 20120831, end: 20120831
  6. KARDEGIC [Suspect]
     Active Substance: ASPIRIN LYSINE
     Dosage: 75 MG, UNK
     Dates: start: 20120831

REACTIONS (12)
  - Hypoaesthesia [Not Recovered/Not Resolved]
  - Foot deformity [Not Recovered/Not Resolved]
  - Apraxia [Not Recovered/Not Resolved]
  - Urinary retention [Unknown]
  - Extensor plantar response [Not Recovered/Not Resolved]
  - Aphasia [Not Recovered/Not Resolved]
  - Cerebrovascular accident [Recovered/Resolved with Sequelae]
  - Gait disturbance [Not Recovered/Not Resolved]
  - Dysgraphia [Not Recovered/Not Resolved]
  - Haemorrhagic stroke [None]
  - Hemiplegia [Not Recovered/Not Resolved]
  - Neurologic neglect syndrome [Not Recovered/Not Resolved]

NARRATIVE: CASE EVENT DATE: 20120901
